FAERS Safety Report 7028176-0 (Version None)
Quarter: 2010Q3

REPORT INFORMATION
  Report Type: 
  Country: None (occurrence: None)
  Receive Date: 20100930
  Receipt Date: 20100924
  Transmission Date: 20110219
  Serious: Yes (Death, Hospitalization)
  Sender: FDA-Public Use
  Company Number: 2010US003934

PATIENT
  Age: 66 Year
  Sex: Female
  Weight: 40 kg

DRUGS (3)
  1. PROGRAF [Suspect]
     Indication: LIVER TRANSPLANT
     Dates: start: 20010101, end: 20100916
  2. ENALAPRIL MALEATE [Concomitant]
  3. PRILOSEC (OMEPRAZOLE) [Concomitant]

REACTIONS (1)
  - LUNG CARCINOMA CELL TYPE UNSPECIFIED STAGE IV [None]
